FAERS Safety Report 16430698 (Version 2)
Quarter: 2019Q2

REPORT INFORMATION
  Report Type: Report from Study
  Country: LB (occurrence: LB)
  Receive Date: 20190614
  Receipt Date: 20190625
  Transmission Date: 20190711
  Serious: Yes (Death, Hospitalization, Other)
  Sender: FDA-Public Use
  Company Number: PHHY2019LB132777

PATIENT
  Age: 46 Year
  Sex: Female

DRUGS (2)
  1. KISQALI [Suspect]
     Active Substance: RIBOCICLIB
     Indication: BREAST CANCER METASTATIC
     Dosage: 600 MG, QD (PER DAY,1 BOX/MONTH)
     Route: 048
     Dates: start: 20190514, end: 20190517
  2. ZOMETA [Concomitant]
     Active Substance: ZOLEDRONIC ACID
     Indication: PRODUCT USED FOR UNKNOWN INDICATION
     Route: 065

REACTIONS (7)
  - Loss of consciousness [Fatal]
  - Decreased appetite [Unknown]
  - Coma [Fatal]
  - Abdominal distension [Not Recovered/Not Resolved]
  - Hepatic failure [Unknown]
  - Gastric pH decreased [Not Recovered/Not Resolved]
  - Asthenia [Unknown]

NARRATIVE: CASE EVENT DATE: 20190604
